FAERS Safety Report 9630159 (Version 1)
Quarter: 2013Q4

REPORT INFORMATION
  Report Type: Spontaneous
  Country: IT (occurrence: IT)
  Receive Date: 20131017
  Receipt Date: 20131017
  Transmission Date: 20140711
  Serious: Yes (Hospitalization)
  Sender: FDA-Public Use
  Company Number: PHHY2013IT116855

PATIENT
  Sex: Female

DRUGS (3)
  1. TEGRETOL [Suspect]
     Dosage: 15 POSOLOGY UNITS IN TOTAL
     Route: 048
  2. HALDOL [Suspect]
     Dosage: ONE BOTTLE AND A HALF
  3. CHLORPROMAZINE [Suspect]
     Dosage: ONE BOTTLE AND A HALF

REACTIONS (2)
  - Toxicity to various agents [Unknown]
  - Sopor [Unknown]
